FAERS Safety Report 7919558-0 (Version None)
Quarter: 2011Q4

REPORT INFORMATION
  Report Type: 
  Country: None (occurrence: None)
  Receive Date: 20111115
  Receipt Date: 20111101
  Transmission Date: 20120403
  Serious: Yes (Hospitalization)
  Sender: FDA-Public Use
  Company Number: TPA2011A07482

PATIENT
  Age: 81 Year
  Sex: Male

DRUGS (11)
  1. WARFARIN SODIUM [Suspect]
     Indication: PRODUCT USED FOR UNKNOWN INDICATION
  2. AMITRIPTYLINE HCL [Concomitant]
  3. DUTASTERIDE (DUTASTERIDE) [Concomitant]
  4. FEBUXOSTAT (FEBUXOSTAT) [Suspect]
     Indication: GOUT
     Dosage: 80 MG (80 MG, 1 IN 1 D), PER ORAL
     Route: 048
     Dates: start: 20110909
  5. PANTOPRAZOLE [Concomitant]
  6. ATORVASTATIN [Concomitant]
  7. ALFACALCIDOL (ALFACALCIDOL) [Concomitant]
  8. COLCHICINE [Suspect]
  9. FUROSEMIDE [Concomitant]
  10. ATENOLOL [Concomitant]
  11. TAMSULOSIN HCL [Concomitant]

REACTIONS (2)
  - INTERNATIONAL NORMALISED RATIO INCREASED [None]
  - DRUG INTERACTION [None]
